FAERS Safety Report 18931373 (Version 1)
Quarter: 2021Q1

REPORT INFORMATION
  Report Type: Not Available
  Country: US (occurrence: US)
  Receive Date: 20210224
  Receipt Date: 20210224
  Transmission Date: 20210420
  Serious: No
  Sender: FDA-Public Use
  Company Number: US-NEUROCRINE BIOSCIENCES INC.-2021NBI00725

PATIENT
  Age: 70 Year
  Sex: Male

DRUGS (3)
  1. INGREZZA [Suspect]
     Active Substance: VALBENAZINE
     Indication: TARDIVE DYSKINESIA
     Dosage: IN THE MORNING
     Route: 048
     Dates: start: 20201231
  2. INGREZZA [Suspect]
     Active Substance: VALBENAZINE
     Dosage: AT THE BEDTIME
     Route: 048
  3. INGREZZA [Suspect]
     Active Substance: VALBENAZINE
     Route: 048

REACTIONS (1)
  - Sluggishness [Unknown]
